FAERS Safety Report 5564815-9 (Version None)
Quarter: 2007Q4

REPORT INFORMATION
  Report Type: 
  Country: None (occurrence: None)
  Receive Date: 20071214
  Receipt Date: 20071214
  Transmission Date: 20080405
  Serious: No
  Sender: FDA-Public Use
  Company Number: None

PATIENT
  Age: 52 Year
  Sex: Female
  Weight: 49.8957 kg

DRUGS (1)
  1. CHANTIX [Suspect]
     Indication: SMOKING CESSATION THERAPY
     Dosage: 1 MG 2 PER DAY PO
     Route: 048
     Dates: start: 20070709, end: 20070909

REACTIONS (7)
  - AGGRESSION [None]
  - BELLIGERENCE [None]
  - DEPRESSION [None]
  - IMPAIRED DRIVING ABILITY [None]
  - LEGAL PROBLEM [None]
  - NAUSEA [None]
  - WEIGHT DECREASED [None]
